FAERS Safety Report 9281027 (Version 1)
Quarter: 2013Q2

REPORT INFORMATION
  Report Type: Spontaneous
  Country: BR (occurrence: BR)
  Receive Date: 20130509
  Receipt Date: 20130509
  Transmission Date: 20140414
  Serious: Yes (Hospitalization)
  Sender: FDA-Public Use
  Company Number: BR-GLAXOSMITHKLINE-A1022883A

PATIENT
  Age: 46 Year
  Sex: Male
  Weight: 83 kg

DRUGS (3)
  1. SERETIDE [Suspect]
     Indication: ASTHMA
     Route: 055
     Dates: start: 2010
  2. SERETIDE [Suspect]
     Indication: ASTHMA
     Route: 055
  3. PREDNISONE [Concomitant]

REACTIONS (3)
  - Pneumonia [Recovering/Resolving]
  - Asthmatic crisis [Recovering/Resolving]
  - Overdose [Unknown]
